FAERS Safety Report 7750043-5 (Version None)
Quarter: 2011Q3

REPORT INFORMATION
  Report Type: 
  Country: None (occurrence: None)
  Receive Date: 20110914
  Receipt Date: 20110906
  Transmission Date: 20111222
  Serious: Yes (Other)
  Sender: FDA-Public Use
  Company Number: US-AMGEN-USASP2011045384

PATIENT
  Age: 56 Year
  Sex: Female

DRUGS (5)
  1. ENBREL [Suspect]
     Indication: RHEUMATOID ARTHRITIS
     Dosage: 50 MG, QWK
     Dates: start: 20110601
  2. METHOTREXATE [Concomitant]
     Dosage: UNK
  3. NAPROXEN [Concomitant]
     Dosage: UNK
  4. TOPROL-XL [Concomitant]
     Dosage: UNK
  5. PARACETAMOL COMP. [Concomitant]
     Dosage: UNK

REACTIONS (5)
  - HEART RATE INCREASED [None]
  - CHEST PAIN [None]
  - ARRHYTHMIA [None]
  - COUGH [None]
  - DYSPNOEA EXERTIONAL [None]
